FAERS Safety Report 14356102 (Version 1)
Quarter: 2018Q1

REPORT INFORMATION
  Report Type: Spontaneous
  Country: GB (occurrence: GB)
  Receive Date: 20180105
  Receipt Date: 20180105
  Transmission Date: 20180509
  Serious: Yes (Disabling, Other)
  Sender: FDA-Public Use
  Company Number: GB-JNJFOC-20180102177

PATIENT
  Age: 48 Year
  Sex: Male
  Weight: 96 kg

DRUGS (5)
  1. PROCYCLIDINE [Concomitant]
     Active Substance: PROCYCLIDINE
     Route: 065
  2. FENTANYL. [Concomitant]
     Active Substance: FENTANYL
     Route: 065
  3. RISPERIDONE. [Suspect]
     Active Substance: RISPERIDONE
     Indication: PRODUCT USED FOR UNKNOWN INDICATION
     Dosage: STARTED 6.5 YEARS AGO
     Route: 065
     Dates: start: 2011
  4. TERBINAFINE. [Interacting]
     Active Substance: TERBINAFINE
     Indication: NAIL INFECTION
     Route: 048
     Dates: start: 20170615, end: 20170715
  5. TRAMADOL. [Concomitant]
     Active Substance: TRAMADOL
     Route: 065

REACTIONS (3)
  - Drug interaction [Recovering/Resolving]
  - Jaw disorder [Recovering/Resolving]
  - Labelled drug-drug interaction medication error [Recovering/Resolving]
